FAERS Safety Report 9936895 (Version 1)
Quarter: 2014Q1

REPORT INFORMATION
  Report Type: Spontaneous
  Country: US (occurrence: None)
  Receive Date: 20140115
  Receipt Date: 20140115
  Transmission Date: 20141002
  Serious: Yes (Hospitalization)
  Sender: FDA-Public Use
  Company Number: 2013US002539

PATIENT
  Age: 44 Year
  Sex: Female
  Weight: 57 kg

DRUGS (7)
  1. ICLUSIG (PONATINIB) TABLET, 45 MG [Suspect]
     Indication: CHRONIC MYELOID LEUKAEMIA
     Route: 048
     Dates: start: 20130204
  2. PROZAC (FLUOXETINE HYDROCHLORIDE) [Concomitant]
  3. XANAX (ALPROZOLAM) [Concomitant]
  4. IRON (IRON) [Concomitant]
  5. NORVASC (AMLODIPINE BESILATE) [Concomitant]
  6. POTASSIUM (POTASSIUM) [Concomitant]
  7. OXYCODONE (OXYCODONE) [Concomitant]

REACTIONS (3)
  - Hypertension [None]
  - Musculoskeletal chest pain [None]
  - Back pain [None]
